FAERS Safety Report 6589532-8 (Version None)
Quarter: 2010Q1

REPORT INFORMATION
  Report Type: 
  Country: None (occurrence: None)
  Receive Date: 20100212
  Receipt Date: 20090624
  Transmission Date: 20100710
  Serious: Yes (Hospitalization)
  Sender: FDA-Public Use
  Company Number: 005294

PATIENT
  Age: 46 Year
  Sex: Female

DRUGS (3)
  1. LEVETIRACETAM [Suspect]
     Indication: EPILEPSY
     Dosage: (1000-0-2000)
  2. OXCARBAZEPINE [Concomitant]
  3. ZONISAMIDE [Concomitant]

REACTIONS (4)
  - COMPLEX PARTIAL SEIZURES [None]
  - DRUG RESISTANCE [None]
  - FATIGUE [None]
  - GRAND MAL CONVULSION [None]
